FAERS Safety Report 9220774 (Version 1)
Quarter: 2013Q2

REPORT INFORMATION
  Report Type: Spontaneous
  Country: GB (occurrence: GB)
  Receive Date: 20130409
  Receipt Date: 20130409
  Transmission Date: 20140414
  Serious: Yes (Hospitalization)
  Sender: FDA-Public Use
  Company Number: GB-TEVA-396202ISR

PATIENT
  Age: 74 Year
  Sex: Female

DRUGS (1)
  1. WARFARIN [Suspect]
     Indication: MITRAL VALVE REPLACEMENT
     Route: 065

REACTIONS (2)
  - Intestinal haematoma [Fatal]
  - Large intestinal obstruction [Fatal]
